FAERS Safety Report 5652222-X (Version None)
Quarter: 2008Q1

REPORT INFORMATION
  Report Type: 
  Country: None (occurrence: None)
  Receive Date: 20080304
  Receipt Date: 20080221
  Transmission Date: 20080703
  Serious: Yes (Disabling)
  Sender: FDA-Public Use
  Company Number: 2008SP001992

PATIENT
  Age: 52 Year
  Sex: Male
  Weight: 76 kg

DRUGS (3)
  1. PEG-INTRON [Suspect]
     Indication: HEPATITIS C
     Dosage: 120 MCG; QW
     Dates: start: 20070924
  2. REBETOL [Concomitant]
  3. ORABET (THE GENERIC IS METFORMIN HYDROCHLORIDE) [Concomitant]

REACTIONS (4)
  - ECZEMA [None]
  - GENERALISED ERYTHEMA [None]
  - PRURITUS [None]
  - RASH [None]
